FAERS Safety Report 5399672-7 (Version None)
Quarter: 2007Q3

REPORT INFORMATION
  Report Type: 
  Country: None (occurrence: None)
  Receive Date: 20070727
  Receipt Date: 20070717
  Transmission Date: 20080115
  Serious: Yes (Life-Threatening, Hospitalization, Other)
  Sender: FDA-Public Use
  Company Number: FR-ABBOTT-07P-056-0374822-00

PATIENT
  Sex: Female

DRUGS (4)
  1. LIPANTHYL [Suspect]
     Indication: HYPERCHOLESTEROLAEMIA
     Route: 048
     Dates: end: 20070419
  2. BETAHISTINE HYDROCHLORIDE [Suspect]
     Indication: VERTIGO
     Route: 048
     Dates: start: 20070315, end: 20070419
  3. ESOMEPRAZOLE MAGNESIUM [Suspect]
     Indication: GASTROOESOPHAGEAL REFLUX DISEASE
     Route: 048
     Dates: end: 20070419
  4. ETHANOLAMINE ACETYLLEUCINATE [Suspect]
     Indication: VERTIGO
     Route: 048
     Dates: start: 20070315, end: 20070419

REACTIONS (11)
  - ACUTE PULMONARY OEDEMA [None]
  - CARDIAC FAILURE [None]
  - CONVULSION [None]
  - DIZZINESS [None]
  - HYPONATRAEMIA [None]
  - MALAISE [None]
  - PNEUMONIA ASPIRATION [None]
  - PSYCHOMOTOR RETARDATION [None]
  - RESPIRATORY DISTRESS [None]
  - VENTRICULAR HYPOKINESIA [None]
  - VOMITING [None]
